FAERS Safety Report 6122984-6 (Version None)
Quarter: 2009Q1

REPORT INFORMATION
  Report Type: 
  Country: None (occurrence: None)
  Receive Date: 20090318
  Receipt Date: 20090306
  Transmission Date: 20090719
  Serious: Yes (Hospitalization)
  Sender: FDA-Public Use
  Company Number: US-ROCHE-614323

PATIENT
  Sex: Female

DRUGS (12)
  1. PEG-INTERFERON A-2A (RO 25-8310) [Suspect]
     Indication: HEPATITIS C
     Route: 065
     Dates: start: 20081212, end: 20090212
  2. RIBAVIRIN [Suspect]
     Indication: HEPATITIS C
     Route: 065
     Dates: start: 20081212, end: 20090212
  3. KALETRA [Concomitant]
  4. VIREAD [Concomitant]
  5. ISENTRESS [Concomitant]
  6. POTASSIUM CHLORIDE [Concomitant]
  7. BACTRIM [Concomitant]
  8. ATENOLOL [Concomitant]
  9. CYCLOBENZAPRINE [Concomitant]
  10. SENECA [Concomitant]
  11. WATER PILL NOS [Concomitant]
     Dosage: DRUG : WATER PILL; FORM:PILL
  12. CLARITIN [Concomitant]

REACTIONS (4)
  - AMNESIA [None]
  - DEHYDRATION [None]
  - DYSGEUSIA [None]
  - PULSE PRESSURE DECREASED [None]
